FAERS Safety Report 16287669 (Version 3)
Quarter: 2022Q1

REPORT INFORMATION
  Report Type: Spontaneous
  Country: US (occurrence: None)
  Receive Date: 20190508
  Receipt Date: 20220311
  Transmission Date: 20220423
  Serious: Yes (Death, Other)
  Sender: FDA-Public Use
  Company Number: 2019SE62129

PATIENT
  Sex: Female
  Weight: 103.9 kg

DRUGS (39)
  1. NEXIUM [Suspect]
     Active Substance: ESOMEPRAZOLE MAGNESIUM
     Indication: Gastrooesophageal reflux disease
     Route: 048
     Dates: start: 20060425, end: 20150228
  2. NEXIUM [Suspect]
     Active Substance: ESOMEPRAZOLE MAGNESIUM
     Indication: Gastrooesophageal reflux disease
     Route: 048
     Dates: start: 20060425
  3. NEXIUM 24HR [Suspect]
     Active Substance: ESOMEPRAZOLE MAGNESIUM
     Route: 048
  4. PRILOSEC [Suspect]
     Active Substance: OMEPRAZOLE MAGNESIUM
     Indication: Gastrooesophageal reflux disease
     Route: 048
  5. PRILOSEC [Suspect]
     Active Substance: OMEPRAZOLE MAGNESIUM
     Indication: Gastrooesophageal reflux disease
     Dosage: GENERIC
     Route: 065
     Dates: start: 20091208, end: 20111212
  6. PRILOSEC OTC [Suspect]
     Active Substance: OMEPRAZOLE MAGNESIUM
     Indication: Gastrooesophageal reflux disease
     Route: 048
     Dates: start: 200306, end: 20200825
  7. PREVACID 24 HR [Suspect]
     Active Substance: LANSOPRAZOLE
     Route: 065
  8. PANTOPRAZOLE [Suspect]
     Active Substance: PANTOPRAZOLE
     Indication: Gastrooesophageal reflux disease
     Route: 065
     Dates: start: 20100715, end: 20160912
  9. HUMULIN NOS [Concomitant]
     Active Substance: INSULIN HUMAN
     Indication: Diabetes mellitus
     Dates: start: 20060425, end: 20070820
  10. AVANDIA [Concomitant]
     Active Substance: ROSIGLITAZONE MALEATE
     Indication: Diabetes mellitus
     Dates: start: 20061018, end: 20070322
  11. ZETIA [Concomitant]
     Active Substance: EZETIMIBE
     Indication: Blood cholesterol increased
     Dates: start: 20061002, end: 20080421
  12. FUROSEMIDE [Concomitant]
     Active Substance: FUROSEMIDE
     Indication: Fluid retention
     Dates: start: 20060728, end: 20070322
  13. PLAVIX [Concomitant]
     Active Substance: CLOPIDOGREL BISULFATE
     Indication: Chest pain
     Dates: start: 20061016, end: 20070820
  14. GABAPENTIN [Concomitant]
     Active Substance: GABAPENTIN
  15. BRILINTA [Concomitant]
     Active Substance: TICAGRELOR
  16. NAPROXEN [Concomitant]
     Active Substance: NAPROXEN
  17. LORATADINE [Concomitant]
     Active Substance: LORATADINE
  18. PATANOL [Concomitant]
     Active Substance: OLOPATADINE HYDROCHLORIDE
  19. CELEBREX [Concomitant]
     Active Substance: CELECOXIB
  20. CARVEDILOL [Concomitant]
     Active Substance: CARVEDILOL
  21. RANITIDINE [Concomitant]
     Active Substance: RANITIDINE
  22. LOVAZA [Concomitant]
     Active Substance: OMEGA-3-ACID ETHYL ESTERS
  23. LISINOPRIL [Concomitant]
     Active Substance: LISINOPRIL
  24. FLUCONAZOLE [Concomitant]
     Active Substance: FLUCONAZOLE
  25. LEVEMIR [Concomitant]
     Active Substance: INSULIN DETEMIR
  26. ATORVASTATIN [Concomitant]
     Active Substance: ATORVASTATIN
  27. HYDRALAZINE [Concomitant]
     Active Substance: HYDRALAZINE HYDROCHLORIDE
  28. TRIAMCINOLONE [Concomitant]
     Active Substance: TRIAMCINOLONE
  29. SPIRONOLACTONE [Concomitant]
     Active Substance: SPIRONOLACTONE
  30. VOLTAREN [Concomitant]
     Active Substance: DICLOFENAC SODIUM
  31. BENZONATATE [Concomitant]
     Active Substance: BENZONATATE
  32. NOVOLOG [Concomitant]
     Active Substance: INSULIN ASPART
  33. SODIUM BICARBONATE [Concomitant]
     Active Substance: SODIUM BICARBONATE
  34. NITROSTAT [Concomitant]
     Active Substance: NITROGLYCERIN
  35. ALTACE [Concomitant]
     Active Substance: RAMIPRIL
  36. TOPROL XL [Concomitant]
     Active Substance: METOPROLOL SUCCINATE
  37. POTASSIUM CHLORIDE [Concomitant]
     Active Substance: POTASSIUM CHLORIDE
  38. CALCITRIOL [Concomitant]
     Active Substance: CALCITRIOL
  39. CEFAZOLIN [Concomitant]
     Active Substance: CEFAZOLIN

REACTIONS (6)
  - End stage renal disease [Fatal]
  - Chronic kidney disease [Not Recovered/Not Resolved]
  - Renal failure [Unknown]
  - Hyperparathyroidism secondary [Unknown]
  - Nephrogenic anaemia [Unknown]
  - Acute kidney injury [Unknown]
